FAERS Safety Report 6085889-5 (Version None)
Quarter: 2009Q1

REPORT INFORMATION
  Report Type: 
  Country: None (occurrence: None)
  Receive Date: 20090220
  Receipt Date: 20090210
  Transmission Date: 20090719
  Serious: Yes (Other)
  Sender: FDA-Public Use
  Company Number: CH-WYE-G03099609

PATIENT
  Age: 33 Year
  Sex: Female
  Weight: 63 kg

DRUGS (5)
  1. EFFEXOR [Suspect]
     Dosage: STEPWISE INCREASE UP TO 150 MG PER DAY
     Dates: start: 20070101, end: 20081101
  2. EFFEXOR [Suspect]
     Route: 048
     Dates: start: 20081101, end: 20090101
  3. EFFEXOR [Suspect]
     Dosage: REDUCTION DOWN TO 1/4 OF 37.5 MG AND STOP
     Dates: start: 20090101, end: 20090101
  4. SERTRALINE [Suspect]
     Route: 048
     Dates: start: 20081101, end: 20090202
  5. SERTRALINE [Suspect]
     Route: 048
     Dates: start: 20090210

REACTIONS (10)
  - ARTHRALGIA [None]
  - BLINDNESS TRANSIENT [None]
  - DRUG INEFFECTIVE [None]
  - DRUG WITHDRAWAL SYNDROME [None]
  - FEELING COLD [None]
  - HEADACHE [None]
  - PARAESTHESIA [None]
  - PYREXIA [None]
  - VISION BLURRED [None]
  - WEIGHT INCREASED [None]
